FAERS Safety Report 6848856-7 (Version None)
Quarter: 2010Q3

REPORT INFORMATION
  Report Type: 
  Country: None (occurrence: None)
  Receive Date: 20100716
  Receipt Date: 20071024
  Transmission Date: 20110219
  Serious: No
  Sender: FDA-Public Use
  Company Number: US-PFIZER INC-2007075198

PATIENT
  Sex: Female
  Weight: 51.8 kg

DRUGS (7)
  1. CHANTIX [Suspect]
     Indication: SMOKING CESSATION THERAPY
     Dates: start: 20070827, end: 20071019
  2. AMOXICILLIN [Concomitant]
     Indication: TOOTH INFECTION
  3. ALBUTEROL [Concomitant]
  4. AZMACORT [Concomitant]
  5. SPIRIVA [Concomitant]
  6. MONTELUKAST SODIUM [Concomitant]
  7. XANAX [Concomitant]

REACTIONS (5)
  - ABDOMINAL DISTENSION [None]
  - DIARRHOEA [None]
  - FLATULENCE [None]
  - HYPERSENSITIVITY [None]
  - NAUSEA [None]
